FAERS Safety Report 9745293 (Version 1)
Quarter: 2013Q4

REPORT INFORMATION
  Report Type: Spontaneous
  Country: CA (occurrence: CA)
  Receive Date: 20131211
  Receipt Date: 20131211
  Transmission Date: 20140711
  Serious: Yes (Hospitalization)
  Sender: FDA-Public Use
  Company Number: CA-AMGEN-CANSP2013086475

PATIENT
  Sex: Female
  Weight: 43 kg

DRUGS (12)
  1. ENBREL [Suspect]
     Indication: PRODUCT USED FOR UNKNOWN INDICATION
     Dosage: 250 MG, Q2WK
     Route: 058
  2. CELEBREX [Concomitant]
     Dosage: UNK
  3. FERROUS GLUCONATE [Concomitant]
     Dosage: UNK
  4. FOLIC ACID [Concomitant]
     Dosage: UNK
  5. FOSAMAX [Concomitant]
     Dosage: UNK
  6. LEVEMIR [Concomitant]
     Dosage: UNK
  7. LYRICA [Concomitant]
     Dosage: UNK
  8. METHOTREXATE [Concomitant]
     Dosage: UNK
  9. MIRAPEX [Concomitant]
     Dosage: UNK
  10. NASONEX [Concomitant]
     Dosage: UNK
  11. NEXIUM                             /01479302/ [Concomitant]
     Dosage: UNK
  12. PREDNISONE [Concomitant]
     Dosage: UNK

REACTIONS (5)
  - Abdominal pain upper [Recovering/Resolving]
  - Back pain [Recovering/Resolving]
  - Cough [Recovering/Resolving]
  - Liver abscess [Recovering/Resolving]
  - Streptococcal infection [Recovering/Resolving]
